FAERS Safety Report 6565083-1 (Version None)
Quarter: 2010Q1

REPORT INFORMATION
  Report Type: 
  Country: None (occurrence: None)
  Receive Date: 20100201
  Receipt Date: 20100125
  Transmission Date: 20100710
  Serious: Yes (Death, Hospitalization)
  Sender: FDA-Public Use
  Company Number: FR-MERCK-1001FRA00052

PATIENT
  Age: 64 Year
  Sex: Male

DRUGS (9)
  1. COSOPT [Suspect]
     Indication: GLAUCOMA
     Route: 047
     Dates: start: 20091020, end: 20091103
  2. VASERETIC [Suspect]
     Indication: VENTRICULAR TACHYARRHYTHMIA
     Dosage: 1 DROP BID
     Route: 048
     Dates: start: 20080101, end: 20091103
  3. ACETAZOLAMIDE [Suspect]
     Indication: GLAUCOMA
     Route: 048
     Dates: start: 20091020, end: 20091103
  4. METFORMIN HYDROCHLORIDE [Suspect]
     Indication: TYPE 2 DIABETES MELLITUS
     Route: 048
     Dates: end: 20091103
  5. FLUINDIONE [Concomitant]
     Route: 048
  6. LATANOPROST [Concomitant]
     Route: 065
  7. ENTECAVIR [Suspect]
     Indication: HEPATITIS B
     Route: 048
     Dates: start: 20080101, end: 20091103
  8. GLICLAZIDE [Suspect]
     Indication: TYPE 2 DIABETES MELLITUS
     Route: 048
     Dates: end: 20091103
  9. NEBIVOLOL HYDROCHLORIDE [Suspect]
     Indication: VENTRICULAR TACHYARRHYTHMIA
     Route: 048
     Dates: start: 20080101, end: 20091103

REACTIONS (5)
  - CARDIO-RESPIRATORY ARREST [None]
  - ELECTROCARDIOGRAM QT PROLONGED [None]
  - HYPOKALAEMIA [None]
  - LACTIC ACIDOSIS [None]
  - VENTRICULAR TACHYCARDIA [None]
